FAERS Safety Report 14055623 (Version 9)
Quarter: 2019Q1

REPORT INFORMATION
  Report Type: Report from Study
  Country: None (occurrence: US)
  Receive Date: 20171006
  Receipt Date: 20190108
  Transmission Date: 20190417
  Serious: Yes (Hospitalization, Other)
  Sender: FDA-Public Use
  Company Number: US-ABBVIE-16K-163-1792543-00

PATIENT
  Sex: Female
  Weight: 81.72 kg

DRUGS (11)
  1. AZITHROMYCIN OINTMENT [Concomitant]
     Indication: BLEPHARITIS
  2. HUMIRA [Suspect]
     Active Substance: ADALIMUMAB
     Indication: PSORIATIC ARTHROPATHY
     Route: 058
     Dates: start: 2015
  3. METFORMIN [Concomitant]
     Active Substance: METFORMIN HYDROCHLORIDE
     Indication: PRODUCT USED FOR UNKNOWN INDICATION
  4. GABAPENTIN. [Concomitant]
     Active Substance: GABAPENTIN
     Indication: PRODUCT USED FOR UNKNOWN INDICATION
  5. ASPIRIN. [Concomitant]
     Active Substance: ASPIRIN
     Indication: PRODUCT USED FOR UNKNOWN INDICATION
  6. AZITHROMYCIN OINTMENT [Concomitant]
     Indication: CONJUNCTIVITIS ALLERGIC
  7. TRAZODONE [Concomitant]
     Active Substance: TRAZODONE HYDROCHLORIDE
     Indication: PRODUCT USED FOR UNKNOWN INDICATION
  8. LATANOPROST. [Concomitant]
     Active Substance: LATANOPROST
     Indication: GLAUCOMA
  9. PRAVASTATIN. [Concomitant]
     Active Substance: PRAVASTATIN
     Indication: PRODUCT USED FOR UNKNOWN INDICATION
  10. LISINOPRIL HCTZ [Concomitant]
     Active Substance: HYDROCHLOROTHIAZIDE\LISINOPRIL
     Indication: PRODUCT USED FOR UNKNOWN INDICATION
  11. HUMIRA [Suspect]
     Active Substance: ADALIMUMAB
     Indication: PSORIASIS
     Route: 058
     Dates: start: 2014

REACTIONS (28)
  - Post procedural complication [Not Recovered/Not Resolved]
  - Visual acuity reduced [Not Recovered/Not Resolved]
  - Conjunctivitis allergic [Unknown]
  - Hypersensitivity [Not Recovered/Not Resolved]
  - Seasonal allergy [Unknown]
  - Blood glucose increased [Recovered/Resolved]
  - Post-traumatic neck syndrome [Recovering/Resolving]
  - Road traffic accident [Recovered/Resolved]
  - Eye swelling [Recovered/Resolved]
  - Psoriatic arthropathy [Recovering/Resolving]
  - Hypertension [Unknown]
  - Eye inflammation [Unknown]
  - Glaucoma [Unknown]
  - Stress [Unknown]
  - Arthralgia [Unknown]
  - Nasopharyngitis [Unknown]
  - Blood cholesterol increased [Unknown]
  - Nasopharyngitis [Recovered/Resolved]
  - Blood potassium decreased [Recovered/Resolved]
  - Cataract [Recovered/Resolved]
  - Surgery [Unknown]
  - Dry skin [Unknown]
  - Muscular weakness [Recovered/Resolved]
  - Eye pain [Recovering/Resolving]
  - Spinal cord injury cervical [Recovering/Resolving]
  - Anxiety [Unknown]
  - Diarrhoea [Recovered/Resolved]
  - Back pain [Recovering/Resolving]

NARRATIVE: CASE EVENT DATE: 2014
